FAERS Safety Report 11659727 (Version 3)
Quarter: 2015Q4

REPORT INFORMATION
  Report Type: Spontaneous
  Country: FR (occurrence: FR)
  Receive Date: 20151026
  Receipt Date: 20151123
  Transmission Date: 20160304
  Serious: Yes (Disabling)
  Sender: FDA-Public Use
  Company Number: FR-PFIZER INC-2015355225

PATIENT
  Age: 34 Year
  Sex: Female

DRUGS (7)
  1. VALIUM [Concomitant]
     Active Substance: DIAZEPAM
     Indication: ANXIETY
     Dosage: 10 MG, 1X/DAY
     Route: 048
     Dates: start: 201409
  2. EFFEXOR LP [Suspect]
     Active Substance: VENLAFAXINE HYDROCHLORIDE
     Indication: MENTAL DISORDER
     Dosage: 112.5 MG, 1X/DAY
     Route: 048
     Dates: start: 201504, end: 2015
  3. EFFEXOR LP [Suspect]
     Active Substance: VENLAFAXINE HYDROCHLORIDE
     Dosage: 75 MG, DAILY
     Route: 048
     Dates: start: 2015
  4. LAMICTAL [Suspect]
     Active Substance: LAMOTRIGINE
     Indication: MENTAL DISORDER
     Dosage: 50 MG, 2X/DAY
     Route: 048
     Dates: start: 201409, end: 2015
  5. LAMICTAL [Suspect]
     Active Substance: LAMOTRIGINE
     Dosage: 25 MG, 2X/DAY
     Route: 048
     Dates: start: 2015
  6. NORSET [Suspect]
     Active Substance: MIRTAZAPINE
     Indication: MENTAL DISORDER
     Dosage: 15 MG, 1X/DAY
     Route: 048
     Dates: start: 201409
  7. XEROQUEL LP [Concomitant]
     Active Substance: QUETIAPINE FUMARATE
     Indication: MENTAL DISORDER
     Dosage: 100 MG, 1X/DAY (2 TABLETS OF 50 MG)
     Route: 048
     Dates: start: 201409

REACTIONS (2)
  - Stress fracture [Unknown]
  - Osteopenia [Unknown]

NARRATIVE: CASE EVENT DATE: 20150818
